FAERS Safety Report 12623261 (Version 1)
Quarter: 2016Q3

REPORT INFORMATION
  Report Type: Spontaneous
  Country: GB (occurrence: GB)
  Receive Date: 20160804
  Receipt Date: 20160804
  Transmission Date: 20161109
  Serious: Yes (Hospitalization)
  Sender: FDA-Public Use
  Company Number: GB-IMPAX LABORATORIES, INC-2016-IPXL-00819

PATIENT
  Age: 62 Year
  Sex: Male

DRUGS (5)
  1. QUETIAPINE. [Concomitant]
     Active Substance: QUETIAPINE
     Indication: PRODUCT USED FOR UNKNOWN INDICATION
     Dosage: 150 MG, DAILY
     Route: 065
  2. CARBIDOPA-LEVODOPA ER [Suspect]
     Active Substance: CARBIDOPA\LEVODOPA
     Indication: PARKINSON^S DISEASE
     Dosage: 768 MG, DAILY (48 MG/H FOR 16 HOURS)
     Route: 065
  3. CARBIDOPA-LEVODOPA ER [Suspect]
     Active Substance: CARBIDOPA\LEVODOPA
     Dosage: 2030 MG, DAILY
     Route: 065
  4. CARBIDOPA-LEVODOPA ER [Suspect]
     Active Substance: CARBIDOPA\LEVODOPA
     Dosage: 1280 MG, DAILY (80 MG/H)
     Route: 065
  5. CARBIDOPA-LEVODOPA ER [Suspect]
     Active Substance: CARBIDOPA\LEVODOPA
     Dosage: SURREPTITIOUS USE AFTER DISCHARGE
     Route: 065

REACTIONS (10)
  - Delusion of replacement [Unknown]
  - Hypokinesia [Unknown]
  - Dopamine dysregulation syndrome [Unknown]
  - Hallucination, visual [Unknown]
  - Anxiety [Unknown]
  - Extra dose administered [Unknown]
  - Cognitive disorder [Unknown]
  - Middle insomnia [Unknown]
  - Restlessness [Unknown]
  - Jealous delusion [Unknown]
